FAERS Safety Report 5675892-9 (Version None)
Quarter: 2008Q1

REPORT INFORMATION
  Report Type: 
  Country: None (occurrence: None)
  Receive Date: 20080321
  Receipt Date: 20080317
  Transmission Date: 20080703
  Serious: Yes (Other)
  Sender: FDA-Public Use
  Company Number: A0715791A

PATIENT
  Sex: Female

DRUGS (2)
  1. VALTREX [Suspect]
     Route: 065
  2. CONCURRENT MEDICATIONS [Concomitant]

REACTIONS (3)
  - CORNEAL DISORDER [None]
  - HERPES ZOSTER [None]
  - VISION BLURRED [None]
